FAERS Safety Report 13644166 (Version 5)
Quarter: 2017Q4

REPORT INFORMATION
  Report Type: Report from Study
  Country: US (occurrence: US)
  Receive Date: 20170612
  Receipt Date: 20171204
  Transmission Date: 20180320
  Serious: Yes (Other)
  Sender: FDA-Public Use
  Company Number: US-ACTELION-A-US2015-126548

PATIENT
  Age: 58 Year
  Sex: Female
  Weight: 60.77 kg

DRUGS (6)
  1. VELETRI [Suspect]
     Active Substance: EPOPROSTENOL
     Indication: PULMONARY ARTERIAL HYPERTENSION
     Dosage: 40 NG/KG, PER MIN
     Route: 042
     Dates: start: 20120307
  2. VELETRI [Suspect]
     Active Substance: EPOPROSTENOL
     Dosage: 40 NG/KG, PER MIN
     Route: 042
  3. SILDENAFIL. [Concomitant]
     Active Substance: SILDENAFIL
  4. WARFARIN [Concomitant]
     Active Substance: WARFARIN
  5. ADCIRCA [Concomitant]
     Active Substance: TADALAFIL
  6. REVATIO [Concomitant]
     Active Substance: SILDENAFIL CITRATE

REACTIONS (28)
  - Catheter site pain [Unknown]
  - Pain in jaw [Unknown]
  - Pneumonia [Unknown]
  - Rash generalised [Unknown]
  - Weight increased [Unknown]
  - Catheter site erythema [Unknown]
  - Chest discomfort [Unknown]
  - Nasopharyngitis [Unknown]
  - Dyspnoea at rest [Unknown]
  - Fluid retention [Unknown]
  - Catheter management [Unknown]
  - Device occlusion [Unknown]
  - Chest pain [Unknown]
  - Bronchitis [Unknown]
  - Condition aggravated [Unknown]
  - Diarrhoea [Not Recovered/Not Resolved]
  - Catheter site warmth [Unknown]
  - Pain in extremity [Unknown]
  - Chronic kidney disease [Unknown]
  - Dyspnoea exertional [Unknown]
  - Transfusion [Unknown]
  - Rash [Unknown]
  - Oedema peripheral [Unknown]
  - Catheter site swelling [Unknown]
  - Device alarm issue [Unknown]
  - Catheter site infection [Recovered/Resolved]
  - Complication associated with device [Unknown]
  - Photophobia [Unknown]

NARRATIVE: CASE EVENT DATE: 201604
